FAERS Safety Report 6231387-5 (Version None)
Quarter: 2009Q2

REPORT INFORMATION
  Report Type: 
  Country: None (occurrence: None)
  Receive Date: 20090616
  Receipt Date: 20090610
  Transmission Date: 20091009
  Serious: Yes (Hospitalization)
  Sender: FDA-Public Use
  Company Number: US-GILEAD-2009-0021786

PATIENT
  Sex: Female
  Weight: 81.72 kg

DRUGS (22)
  1. LETAIRIS [Suspect]
     Indication: PULMONARY ARTERIAL HYPERTENSION
     Route: 048
     Dates: start: 20080912
  2. REMODULIN [Concomitant]
  3. COUMADIN [Concomitant]
  4. OXYGEN [Concomitant]
  5. LASIX [Concomitant]
  6. ALDACTONE [Concomitant]
  7. DIGOXIN [Concomitant]
  8. EFFEXOR [Concomitant]
  9. SPIRIVA [Concomitant]
  10. PROAIR HFA [Concomitant]
  11. PREDNISONE [Concomitant]
  12. POTASSIUM CHLORIDE [Concomitant]
  13. HYDROCODONE BITARTRATE [Concomitant]
  14. TRICOR [Concomitant]
  15. LIPITOR [Concomitant]
  16. PRILOSEC [Concomitant]
  17. CELLCEPT [Concomitant]
  18. LANTUS [Concomitant]
  19. HUMULIN R [Concomitant]
  20. PLAQUENIL [Concomitant]
  21. MULTI-VITAMIN [Concomitant]
  22. MYCELEX [Concomitant]

REACTIONS (2)
  - DRUG INEFFECTIVE [None]
  - PULMONARY ARTERIAL HYPERTENSION [None]
